FAERS Safety Report 10684627 (Version 1)
Quarter: 2014Q4

REPORT INFORMATION
  Report Type: Spontaneous
  Country: IT (occurrence: None)
  Receive Date: 20141229
  Receipt Date: 20141229
  Transmission Date: 20150529
  Serious: Yes (Other)
  Sender: FDA-Public Use
  Company Number: 2677299

PATIENT
  Age: 52 Year
  Sex: Female
  Weight: 58 kg

DRUGS (2)
  1. (BEVACIZUMAB) [Concomitant]
     Active Substance: BEVACIZUMAB
  2. (PACLITAXEL) [Suspect]
     Active Substance: PACLITAXEL
     Indication: BREAST CANCER
     Dosage: 120 MG MILLIGRAM(S) (CYCLICAL) INTRAVENOUS (NOT OTHERWISE SPECIFIED)
     Route: 042
     Dates: start: 20140911, end: 20141204

REACTIONS (4)
  - Alanine aminotransferase increased [None]
  - Metastasis [None]
  - Hepatotoxicity [None]
  - Aspartate aminotransferase increased [None]

NARRATIVE: CASE EVENT DATE: 20141210
